FAERS Safety Report 25912279 (Version 1)
Quarter: 2025Q4

REPORT INFORMATION
  Report Type: Spontaneous
  Country: AU (occurrence: AU)
  Receive Date: 20251013
  Receipt Date: 20251013
  Transmission Date: 20260118
  Serious: Yes (Other)
  Sender: MICRO LABS LIMITED
  Company Number: AU-MICRO LABS LIMITED-ML2025-05176

PATIENT
  Age: 83 Year
  Sex: Female
  Weight: 68 kg

DRUGS (5)
  1. SUCCINYLCHOLINE CHLORIDE [Suspect]
     Active Substance: SUCCINYLCHOLINE CHLORIDE
     Indication: Anaesthesia
     Dates: start: 2021
  2. RIVASTIGMINE [Suspect]
     Active Substance: RIVASTIGMINE
     Indication: Dementia
     Dosage: FOR 4 YEARS
     Dates: start: 201804
  3. LITHIUM [Concomitant]
     Active Substance: LITHIUM
     Indication: Mental disorder
  4. DULOXETINE [Concomitant]
     Active Substance: DULOXETINE
     Indication: Mental disorder
  5. QUETIAPINE [Concomitant]
     Active Substance: QUETIAPINE
     Indication: Mental disorder

REACTIONS (5)
  - Unmasking of previously unidentified disease [Unknown]
  - Drug interaction [Unknown]
  - Paralysis [Recovered/Resolved]
  - Apnoea [Recovered/Resolved]
  - Pseudocholinesterase deficiency [Unknown]

NARRATIVE: CASE EVENT DATE: 20210101
